FAERS Safety Report 9381619 (Version 1)
Quarter: 2013Q3

REPORT INFORMATION
  Report Type: Spontaneous
  Country: US (occurrence: US)
  Receive Date: 20130703
  Receipt Date: 20130703
  Transmission Date: 20140515
  Serious: Yes (Other)
  Sender: FDA-Public Use
  Company Number: US-PFIZER INC-2013194368

PATIENT
  Age: 70 Year
  Sex: Male
  Weight: 111.11 kg

DRUGS (4)
  1. VIAGRA [Suspect]
     Indication: ERECTILE DYSFUNCTION
     Dosage: 100 MG, AS NEEDED
     Route: 048
     Dates: start: 2003
  2. LISINOPRIL [Concomitant]
     Indication: HYPERTENSION
     Dosage: 10 MG, UNK
  3. BABY ASPIRIN [Concomitant]
     Dosage: UNK
  4. CELEBREX [Concomitant]
     Dosage: 200 MG, UNK

REACTIONS (2)
  - Diabetes mellitus [Unknown]
  - Drug effect decreased [Unknown]
